FAERS Safety Report 15797211 (Version 2)
Quarter: 2019Q1

REPORT INFORMATION
  Report Type: Spontaneous
  Country: US (occurrence: US)
  Receive Date: 20190108
  Receipt Date: 20190329
  Transmission Date: 20190417
  Serious: No
  Sender: FDA-Public Use
  Company Number: US-JNJFOC-20181227187

PATIENT
  Age: 37 Year
  Sex: Female

DRUGS (8)
  1. IBUPROFEN. [Suspect]
     Active Substance: IBUPROFEN
     Indication: HYSTERECTOMY
     Route: 065
     Dates: start: 20181205, end: 20181207
  2. TYLENOL [Suspect]
     Active Substance: ACETAMINOPHEN
     Indication: PROCEDURAL PAIN
     Route: 065
     Dates: start: 20181205, end: 20181207
  3. IBUPROFEN. [Suspect]
     Active Substance: IBUPROFEN
     Indication: PAIN
     Route: 065
     Dates: start: 20181205, end: 20181207
  4. OXYCODONE [Concomitant]
     Active Substance: OXYCODONE
     Indication: HYSTERECTOMY
     Route: 065
     Dates: start: 20181205, end: 20181207
  5. TYLENOL [Suspect]
     Active Substance: ACETAMINOPHEN
     Route: 065
  6. OXYCODONE [Concomitant]
     Active Substance: OXYCODONE
     Indication: PAIN
     Route: 065
     Dates: start: 20181205, end: 20181207
  7. LISINOPRIL. [Concomitant]
     Active Substance: LISINOPRIL
     Indication: HYPERTENSION
     Route: 048
     Dates: start: 20181011
  8. AVOBENZONE/OCTISALATE/OCTOCRYLENE/OXYBENZONE [Concomitant]
     Indication: PRODUCT USED FOR UNKNOWN INDICATION
     Route: 061
     Dates: start: 20181018

REACTIONS (2)
  - Product use in unapproved indication [Unknown]
  - Off label use [Unknown]
